FAERS Safety Report 20138627 (Version 4)
Quarter: 2022Q1

REPORT INFORMATION
  Report Type: Spontaneous
  Country: IT (occurrence: IT)
  Receive Date: 20211202
  Receipt Date: 20220107
  Transmission Date: 20220424
  Serious: Yes (Life-Threatening, Hospitalization)
  Sender: FDA-Public Use
  Company Number: IT-TEVA-2021-IT-1982468

PATIENT
  Age: 23 Year
  Sex: Male

DRUGS (6)
  1. VALPROIC ACID [Suspect]
     Active Substance: VALPROIC ACID
     Indication: Status epilepticus
     Dosage: LOADING DOSE
     Route: 065
  2. VALPROIC ACID [Suspect]
     Active Substance: VALPROIC ACID
     Indication: Status epilepticus
     Dosage: MAINTENANCE DOSE
     Route: 065
  3. LEVETIRACETAM [Suspect]
     Active Substance: LEVETIRACETAM
     Indication: Status epilepticus
     Dosage: ADDITIONAL INFO: TAPERED OFF
     Route: 042
  4. LEVETIRACETAM [Suspect]
     Active Substance: LEVETIRACETAM
     Indication: Status epilepticus
     Dosage: ADDITIONAL INFO: TAPERED OFF
     Route: 042
  5. PROPOFOL [Suspect]
     Active Substance: PROPOFOL
     Indication: Sedation
     Dosage: ADDITIONAL INFO: WEANED OFF
     Route: 041
  6. MIDAZOLAM [Suspect]
     Active Substance: MIDAZOLAM
     Indication: Status epilepticus
     Dosage: ROUTE OF ADMINISTRATION: INFUSION
     Route: 050

REACTIONS (1)
  - Drug ineffective [Unknown]
